FAERS Safety Report 22160888 (Version 1)
Quarter: 2023Q1

REPORT INFORMATION
  Report Type: Spontaneous
  Country: US (occurrence: None)
  Receive Date: 20230330
  Receipt Date: 20230330
  Transmission Date: 20230418
  Serious: Yes (Hospitalization)
  Sender: FDA-Public Use
  Company Number: None

PATIENT
  Age: 37 Year
  Sex: Female

DRUGS (1)
  1. HUMIRA [Suspect]
     Active Substance: ADALIMUMAB
     Indication: Hidradenitis
     Dosage: 80MG OTHER  SUBCUTANEOUS?
     Route: 058
     Dates: start: 202302

REACTIONS (2)
  - Hidradenitis [None]
  - Condition aggravated [None]

NARRATIVE: CASE EVENT DATE: 20230313
